FAERS Safety Report 10563238 (Version 3)
Quarter: 2015Q2

REPORT INFORMATION
  Report Type: Spontaneous
  Country: US (occurrence: US)
  Receive Date: 20141104
  Receipt Date: 20150402
  Transmission Date: 20150821
  Serious: Yes (Hospitalization, Other)
  Sender: FDA-Public Use
  Company Number: US-GSKJP-DK201203772002

PATIENT
  Age: 81 Year
  Sex: Female

DRUGS (18)
  1. PREDNISONE. [Concomitant]
     Active Substance: PREDNISONE
     Indication: PRODUCT USED FOR UNKNOWN INDICATION
     Dosage: 20 MG, QD
     Route: 048
     Dates: start: 20111028
  2. ULTRAM [Concomitant]
     Active Substance: TRAMADOL HYDROCHLORIDE
  3. ADVAIR HFA [Concomitant]
     Active Substance: FLUTICASONE PROPIONATE\SALMETEROL XINAFOATE
  4. ALKERAN [Suspect]
     Active Substance: MELPHALAN
     Indication: PLASMA CELL MYELOMA
     Dosage: 2 MG, QD
     Route: 048
     Dates: start: 20111028
  5. PRILOSEC [Concomitant]
     Active Substance: OMEPRAZOLE MAGNESIUM
  6. ASA [Concomitant]
     Active Substance: ASPIRIN
  7. CYMBALTA [Concomitant]
     Active Substance: DULOXETINE HYDROCHLORIDE
  8. LISINOPRIL. [Concomitant]
     Active Substance: LISINOPRIL
  9. ALKERAN [Suspect]
     Active Substance: MELPHALAN
     Dosage: 1 MG, QD
     Route: 048
     Dates: start: 20111028
  10. NITROGLYCERIN. [Concomitant]
     Active Substance: NITROGLYCERIN
  11. PAIN MEDICATION [Suspect]
     Active Substance: UNSPECIFIED INGREDIENT
  12. COREG [Concomitant]
     Active Substance: CARVEDILOL
  13. ZOMETA [Concomitant]
     Active Substance: ZOLEDRONIC ACID
     Indication: PRODUCT USED FOR UNKNOWN INDICATION
     Route: 065
     Dates: start: 20111006
  14. KCL [Concomitant]
     Active Substance: POTASSIUM CHLORIDE
  15. NEURONTIN [Concomitant]
     Active Substance: GABAPENTIN
  16. PLAVIX [Concomitant]
     Active Substance: CLOPIDOGREL BISULFATE
  17. LASIX [Concomitant]
     Active Substance: FUROSEMIDE
  18. PRAVASTATIN [Concomitant]
     Active Substance: PRAVASTATIN\PRAVASTATIN SODIUM

REACTIONS (5)
  - Presyncope [Unknown]
  - Blood pressure decreased [Unknown]
  - Syncope [Unknown]
  - Shock [Unknown]
  - Vomiting [Unknown]

NARRATIVE: CASE EVENT DATE: 20111028
